FAERS Safety Report 16739888 (Version 1)
Quarter: 2019Q3

REPORT INFORMATION
  Report Type: Spontaneous
  Country: FR (occurrence: FR)
  Receive Date: 20190826
  Receipt Date: 20190826
  Transmission Date: 20191005
  Serious: Yes (Other)
  Sender: FDA-Public Use
  Company Number: FR-MYLANLABS-2019M1078473

PATIENT
  Age: 19 Year
  Sex: Male
  Weight: 70 kg

DRUGS (7)
  1. CEFAZOLINE MYLAN 2 G POUDRE POUR SOLUTION INJECTABLE OU POUR PERFUSION [Suspect]
     Active Substance: CEFAZOLIN SODIUM
     Indication: ANTIBIOTIC PROPHYLAXIS
     Dosage: 1 DOSAGE FORM, TOTAL
     Route: 042
     Dates: start: 20190222, end: 20190222
  2. PROPOFOL LIPURO [Suspect]
     Active Substance: PROPOFOL
     Indication: GENERAL ANAESTHESIA
     Dosage: 200 MILLIGRAM, TOTAL
     Route: 042
     Dates: start: 20190222, end: 20190222
  3. KETAMINE RENAUDIN [Suspect]
     Active Substance: KETAMINE
     Indication: GENERAL ANAESTHESIA
     Dosage: 15 MILLIGRAM, TOTAL
     Route: 042
     Dates: start: 20190222, end: 20190222
  4. CISATRACURIUM MYLAN 2 MG/ML, SOLUTION INJECTABLE/POUR PERFUSION [Suspect]
     Active Substance: CISATRACURIUM
     Indication: GENERAL ANAESTHESIA
     Dosage: 8 MILLIGRAM, TOTAL
     Route: 042
     Dates: start: 20190222, end: 20190222
  5. DEXAMETHASONE MYLAN 4 MG/1 ML, SOLUTION INJECTABLE EN AMPOULE [Suspect]
     Active Substance: DEXAMETHASONE
     Indication: ALLERGY PROPHYLAXIS
     Dosage: 8 MILLIGRAM, TOTAL
     Route: 042
     Dates: start: 20190222, end: 20190222
  6. DROPERIDOL AGUETTANT [Suspect]
     Active Substance: DROPERIDOL
     Indication: PROPHYLAXIS
     Dosage: 1 DOSAGE FORM, TOTAL
     Route: 042
     Dates: start: 20190222, end: 20190222
  7. SUFENTANIL MYLAN [Suspect]
     Active Substance: SUFENTANIL
     Indication: GENERAL ANAESTHESIA
     Dosage: 20 MICROGRAM, TOTAL
     Route: 042
     Dates: start: 20190222, end: 20190222

REACTIONS (1)
  - Rash [Recovered/Resolved]

NARRATIVE: CASE EVENT DATE: 20190222
